FAERS Safety Report 4896609-1 (Version None)
Quarter: 2005Q4

REPORT INFORMATION
  Report Type: 
  Country: None (occurrence: None)
  Receive Date: 20051223
  Receipt Date: 20051130
  Transmission Date: 20060501
  Serious: Yes (Other)
  Sender: FDA-Public Use
  Company Number: 426961

PATIENT
  Age: 53 Year
  Sex: Female

DRUGS (9)
  1. COPEGUS [Suspect]
     Indication: HEPATITIS C
     Dates: start: 20051019
  2. PEG-INTRON [Suspect]
     Indication: HEPATITIS C
     Dates: start: 20051019
  3. COMBIVENT INHALER (IPRATROPIUM BROMIDE/SALBUTAMOL) [Concomitant]
  4. DEPAKOTE (DIVALOPREX SODIUM) [Concomitant]
  5. FLONASE [Concomitant]
  6. KLONOPIN [Concomitant]
  7. SEROQUEL [Concomitant]
  8. SPIRONOLACTONE [Concomitant]
  9. ZANTAC [Concomitant]

REACTIONS (3)
  - ANAEMIA [None]
  - FATIGUE [None]
  - RHEUMATOID ARTHRITIS [None]
